FAERS Safety Report 19156528 (Version 1)
Quarter: 2021Q2

REPORT INFORMATION
  Report Type: Spontaneous
  Country: SE (occurrence: SE)
  Receive Date: 20210419
  Receipt Date: 20210419
  Transmission Date: 20210717
  Serious: Yes (Other)
  Sender: FDA-Public Use
  Company Number: SE-AMGEN-SWESP2021059698

PATIENT
  Age: 41 Year
  Sex: Female

DRUGS (3)
  1. SUMATRIPTAN. [Concomitant]
     Active Substance: SUMATRIPTAN
     Indication: PRODUCT USED FOR UNKNOWN INDICATION
     Dosage: UNK (TERAPIREGIM FRAMKOMMER EJ)
     Route: 065
     Dates: start: 2016
  2. AIMOVIG [Suspect]
     Active Substance: ERENUMAB-AOOE
     Indication: MIGRAINE
     Dosage: 1 UNK, Q4WK (140 MG 1 INJ./4:E VECKA)
     Route: 065
     Dates: start: 20200915
  3. BOTOX [Concomitant]
     Active Substance: ONABOTULINUMTOXINA
     Indication: PRODUCT USED FOR UNKNOWN INDICATION
     Dosage: UNK (TERAPIREGIM FRAMKOMMER EJ)
     Route: 065
     Dates: start: 20190612

REACTIONS (1)
  - Menstrual disorder [Not Recovered/Not Resolved]
